FAERS Safety Report 10388730 (Version 1)
Quarter: 2014Q1

REPORT INFORMATION
  Report Type: Spontaneous
  Country: US (occurrence: None)
  Receive Date: 20140306
  Receipt Date: 20140306
  Transmission Date: 20141002
  Serious: Yes (Other)
  Sender: FDA-Public Use
  Company Number: 163-21880-13124091

PATIENT
  Age: 66 Year
  Sex: Male

DRUGS (4)
  1. REVLIMID (LENALIDOMIDE) (25 MILLIGRAM, CAPSULES) [Suspect]
     Indication: PLASMA CELL MYELOMA
     Route: 048
     Dates: start: 20130927
  2. CHEMOTHERAPY MEDICATION (CHEMOTHERAPEUTICS) [Concomitant]
  3. PRADAXA (DABIGATRAN ETEXILATE MESILATE) (CAPSULES) [Concomitant]
  4. VITAMIN B12 (CYANOCOBALAMIN) (CAPSULES) [Concomitant]

REACTIONS (1)
  - Platelet count decreased [None]
